FAERS Safety Report 5281756-5 (Version None)
Quarter: 2007Q1

REPORT INFORMATION
  Report Type: 
  Country: None (occurrence: None)
  Receive Date: 20070330
  Receipt Date: 20070322
  Transmission Date: 20070707
  Serious: Yes (Hospitalization)
  Sender: FDA-Public Use
  Company Number: JP-GLAXOSMITHKLINE-B0463008A

PATIENT
  Age: 33 Year
  Sex: Female

DRUGS (2)
  1. PAXIL [Suspect]
     Indication: DEPRESSION
     Route: 048
     Dates: start: 20060619
  2. UNSPECIFIED MEDICATION [Concomitant]
     Indication: DEPRESSION
     Route: 048

REACTIONS (11)
  - BRAIN OEDEMA [None]
  - CONVULSION [None]
  - DEPRESSED LEVEL OF CONSCIOUSNESS [None]
  - HYPONATRAEMIA [None]
  - INAPPROPRIATE ANTIDIURETIC HORMONE SECRETION [None]
  - JOINT ANKYLOSIS [None]
  - MYDRIASIS [None]
  - POLYURIA [None]
  - TONIC CONVULSION [None]
  - WATER INTOXICATION [None]
  - WEIGHT INCREASED [None]
